FAERS Safety Report 17962413 (Version 1)
Quarter: 2020Q2

REPORT INFORMATION
  Report Type: Spontaneous
  Country: US (occurrence: US)
  Receive Date: 20200630
  Receipt Date: 20200630
  Transmission Date: 20200714
  Serious: Yes (Hospitalization, Other)
  Sender: FDA-Public Use
  Company Number: US-SA-2020SA165516

PATIENT

DRUGS (1)
  1. FERRLECIT [Suspect]
     Active Substance: SODIUM FERRIC GLUCONATE COMPLEX
     Indication: ANAEMIA
     Dosage: 250 MG
     Route: 041
     Dates: start: 20200611, end: 20200611

REACTIONS (7)
  - Hypersensitivity [Recovered/Resolved]
  - Hypotension [Not Recovered/Not Resolved]
  - Urticaria [Recovered/Resolved]
  - Feeling hot [Recovered/Resolved]
  - Nausea [Not Recovered/Not Resolved]
  - Anaphylactic reaction [Not Recovered/Not Resolved]
  - Abdominal pain [Recovered/Resolved]

NARRATIVE: CASE EVENT DATE: 20200611
